FAERS Safety Report 8921730 (Version 2)
Quarter: 2013Q1

REPORT INFORMATION
  Report Type: Spontaneous
  Country: US (occurrence: US)
  Receive Date: 20121121
  Receipt Date: 20130227
  Transmission Date: 20140127
  Serious: Yes (Hospitalization, Other)
  Sender: FDA-Public Use
  Company Number: US-GILEAD-2012-0064950

PATIENT
  Age: 63 Year
  Sex: Male

DRUGS (2)
  1. LETAIRIS [Suspect]
     Indication: PORTAL HYPERTENSION
     Dosage: 5 MG, QD
     Route: 048
     Dates: start: 20121002
  2. ADCIRCA [Concomitant]

REACTIONS (4)
  - Transplant evaluation [Unknown]
  - Pneumonia [Unknown]
  - Back injury [Unknown]
  - Joint injury [Unknown]
